FAERS Safety Report 11822475 (Version 1)
Quarter: 2015Q4

REPORT INFORMATION
  Report Type: Spontaneous
  Country: US (occurrence: US)
  Receive Date: 20151210
  Receipt Date: 20151210
  Transmission Date: 20160305
  Serious: Yes (Other)
  Sender: FDA-Public Use
  Company Number: US-JNJFOC-20150603770

PATIENT
  Sex: Male

DRUGS (17)
  1. ATENOLOL. [Concomitant]
     Active Substance: ATENOLOL
     Dosage: 1 A.M. 1/2 P.M.
  2. MULTIVITAMINS [Concomitant]
     Active Substance: VITAMINS
  3. ACIPHEX [Concomitant]
     Active Substance: RABEPRAZOLE SODIUM
  4. ASPIRIN. [Concomitant]
     Active Substance: ASPIRIN
  5. CYCLOBENZAPRINE [Concomitant]
     Active Substance: CYCLOBENZAPRINE
  6. PROVENTIL [Concomitant]
     Active Substance: ALBUTEROL
     Dosage: 2 EVERY 4-6 HOURS
  7. SIMCOR [Concomitant]
     Active Substance: NIACIN\SIMVASTATIN
     Dosage: 750MG/ 20MG
  8. NORCO [Concomitant]
     Active Substance: ACETAMINOPHEN\HYDROCODONE BITARTRATE
     Dosage: 5MG/325MG
  9. FELODIPINE. [Concomitant]
     Active Substance: FELODIPINE
  10. HYDROCHLOROTHIAZIDE. [Concomitant]
     Active Substance: HYDROCHLOROTHIAZIDE
     Dosage: ONCE EVERY OTHER DAY
  11. ATROVENT [Concomitant]
     Active Substance: IPRATROPIUM BROMIDE
  12. DIOVAN [Concomitant]
     Active Substance: VALSARTAN
  13. TAMSULOSIN [Concomitant]
     Active Substance: TAMSULOSIN
     Dosage: AT P.M
  14. IMBRUVICA [Suspect]
     Active Substance: IBRUTINIB
     Indication: CHRONIC LYMPHOCYTIC LEUKAEMIA
     Route: 048
     Dates: start: 20150417
  15. AVODART [Concomitant]
     Active Substance: DUTASTERIDE
  16. CILOSTAZOL. [Concomitant]
     Active Substance: CILOSTAZOL
  17. QVAR [Concomitant]
     Active Substance: BECLOMETHASONE DIPROPIONATE
     Dosage: 2 PUFFS

REACTIONS (4)
  - Epistaxis [Recovered/Resolved]
  - Red blood cell count decreased [Unknown]
  - Dyspnoea [Recovered/Resolved]
  - Fatigue [Recovering/Resolving]

NARRATIVE: CASE EVENT DATE: 2015
